FAERS Safety Report 13190519 (Version 3)
Quarter: 2017Q2

REPORT INFORMATION
  Report Type: Spontaneous
  Country: GB (occurrence: GB)
  Receive Date: 20170206
  Receipt Date: 20170509
  Transmission Date: 20170830
  Serious: Yes (Life-Threatening, Hospitalization, Disabling, Other)
  Sender: FDA-Public Use
  Company Number: PHFR2017GB000928

PATIENT
  Age: 26 Year
  Sex: Male

DRUGS (2)
  1. COSENTYX [Suspect]
     Active Substance: SECUKINUMAB
     Indication: PSORIASIS
     Dosage: 300 MG, UNK
     Route: 065
  2. COSENTYX [Suspect]
     Active Substance: SECUKINUMAB
     Indication: PSORIATIC ARTHROPATHY

REACTIONS (6)
  - Acute myocardial infarction [Recovered/Resolved]
  - Hyperhidrosis [Unknown]
  - Chest pain [Recovering/Resolving]
  - Dyspnoea [Unknown]
  - Chest discomfort [Unknown]
  - Coronary artery thrombosis [Recovered/Resolved]

NARRATIVE: CASE EVENT DATE: 20160822
